FAERS Safety Report 4973255-2 (Version None)
Quarter: 2006Q2

REPORT INFORMATION
  Report Type: 
  Country: None (occurrence: None)
  Receive Date: 20060407
  Receipt Date: 20060324
  Transmission Date: 20061013
  Serious: Yes (Life-Threatening, Disabling, Other)
  Sender: FDA-Public Use
  Company Number: 2005JP002264

PATIENT
  Age: 12 Year
  Sex: Female
  Weight: 54.1 kg

DRUGS (2)
  1. PROGRAF [Suspect]
     Indication: BONE MARROW TRANSPLANT
     Dosage: 0.02 MG/KG, UID/QD, IV DRIP
     Route: 041
     Dates: start: 20040602, end: 20040814
  2. METHYLPREDNISOLONE [Suspect]
     Indication: BONE MARROW TRANSPLANT
     Dosage: 1 MG/KG, UID/QD, IV BOLUS
     Route: 040
     Dates: start: 20040602

REACTIONS (7)
  - ACUTE RESPIRATORY DISTRESS SYNDROME [None]
  - CYTOMEGALOVIRUS INFECTION [None]
  - HYPERGLYCAEMIA [None]
  - HYPERTENSION [None]
  - MICROANGIOPATHY [None]
  - STAPHYLOCOCCAL SEPSIS [None]
  - SUBDURAL HAEMATOMA [None]
